FAERS Safety Report 26068517 (Version 1)
Quarter: 2025Q4

REPORT INFORMATION
  Report Type: Report from Study
  Country: US (occurrence: US)
  Receive Date: 20251120
  Receipt Date: 20251120
  Transmission Date: 20260117
  Serious: Yes (Hospitalization, Other)
  Sender: TAKEDA
  Company Number: US-TAKEDA-2024TUS074653

PATIENT
  Age: 54 Year
  Sex: Female
  Weight: 74 kg

DRUGS (6)
  1. BRIGATINIB [Suspect]
     Active Substance: BRIGATINIB
     Indication: Lung neoplasm malignant
     Dosage: 180 MILLIGRAM, QD
     Dates: start: 20240716
  2. BRIGATINIB [Suspect]
     Active Substance: BRIGATINIB
     Dosage: 180 MILLIGRAM, QD
  3. BRIGATINIB [Suspect]
     Active Substance: BRIGATINIB
     Dosage: 180 MILLIGRAM, QD
  4. BRIGATINIB [Suspect]
     Active Substance: BRIGATINIB
     Dosage: 180 MILLIGRAM, QD
  5. BRIGATINIB [Suspect]
     Active Substance: BRIGATINIB
     Dosage: 180 MILLIGRAM, QD
     Dates: end: 202509
  6. DEXAMETHASONE [Concomitant]
     Active Substance: DEXAMETHASONE
     Dosage: UNK

REACTIONS (17)
  - Fall [Unknown]
  - Femur fracture [Unknown]
  - Mobility decreased [Unknown]
  - Pain [Unknown]
  - Pain in extremity [Unknown]
  - Hypoaesthesia [Unknown]
  - Vomiting [Unknown]
  - Dry throat [Unknown]
  - Product dose omission issue [Unknown]
  - Drug delivery system issue [Unknown]
  - Bone pain [Unknown]
  - Product dose omission in error [Unknown]
  - Nausea [Not Recovered/Not Resolved]
  - Headache [Unknown]
  - Fatigue [Unknown]
  - Rash [Unknown]
  - Diarrhoea [Unknown]
